FAERS Safety Report 5835755-2 (Version None)
Quarter: 2008Q3

REPORT INFORMATION
  Report Type: 
  Country: None (occurrence: None)
  Receive Date: 20080725
  Receipt Date: 20071005
  Transmission Date: 20090109
  Serious: Yes (Hospitalization, Other)
  Sender: FDA-Public Use
  Company Number: 38537-1

PATIENT
  Age: 79 Year
  Sex: Male
  Weight: 79 kg

DRUGS (1)
  1. ETOPOSIDE [Suspect]
     Indication: SMALL CELL LUNG CANCER STAGE UNSPECIFIED
     Dosage: 193MG/IV
     Route: 042
     Dates: start: 20070416

REACTIONS (1)
  - PNEUMONIA [None]
